FAERS Safety Report 4388075-X (Version None)
Quarter: 2004Q2

REPORT INFORMATION
  Report Type: 
  Country: None (occurrence: None)
  Receive Date: 20040629
  Receipt Date: 20040629
  Transmission Date: 20050107
  Serious: Yes (Hospitalization)
  Sender: FDA-Public Use
  Company Number: None

PATIENT
  Sex: Male

DRUGS (1)
  1. TRAZODONE HCL [Suspect]
     Dosage: XL ORAL
     Route: 048
     Dates: start: 20040627, end: 20040627

REACTIONS (2)
  - PRIAPISM [None]
  - SELF-MEDICATION [None]
